FAERS Safety Report 4853151-1 (Version None)
Quarter: 2005Q4

REPORT INFORMATION
  Report Type: 
  Country: None (occurrence: None)
  Receive Date: 20051212
  Receipt Date: 20051130
  Transmission Date: 20060501
  Serious: Yes (Death, Life-Threatening)
  Sender: FDA-Public Use
  Company Number: 2005JP002312

PATIENT
  Age: 80 Year
  Sex: Female
  Weight: 46.4 kg

DRUGS (7)
  1. FUNGUARD                  (MICAFUNGIN INJECTION) [Suspect]
     Indication: FUNGAL INFECTION
     Dosage: SEE IMAGE
     Route: 041
     Dates: start: 20050805, end: 20050810
  2. FUNGUARD                  (MICAFUNGIN INJECTION) [Suspect]
     Indication: FUNGAL INFECTION
     Dosage: SEE IMAGE
     Route: 041
     Dates: start: 20050823, end: 20050823
  3. VFEND [Concomitant]
  4. AZACTAM [Concomitant]
  5. PASIL                    (PAZUFLOXACIN MESILATE) INJECTION [Concomitant]
  6. GRAN                 (FILGRASTIM) INJECTION [Concomitant]
  7. CYLOCIDE   (CYTARABINE) INJECTION [Concomitant]

REACTIONS (2)
  - BLOOD BILIRUBIN INCREASED [None]
  - PNEUMONIA [None]
